FAERS Safety Report 18499217 (Version 4)
Quarter: 2020Q4

REPORT INFORMATION
  Report Type: Spontaneous
  Country: FR (occurrence: FR)
  Receive Date: 20201112
  Receipt Date: 20201228
  Transmission Date: 20210114
  Serious: Yes (Other)
  Sender: FDA-Public Use
  Company Number: FR-JAZZ-2020-FR-011442

PATIENT

DRUGS (1)
  1. VYXEOS [Suspect]
     Active Substance: CYTARABINE\DAUNORUBICIN
     Indication: ESSENTIAL THROMBOCYTHAEMIA
     Dosage: 44 MG/M2, , I.E. 85.492 MG ON D1, D3 AND D5
     Route: 065
     Dates: start: 20200904, end: 20200908

REACTIONS (10)
  - Pneumonia [Unknown]
  - Haematuria [Unknown]
  - Off label use [Unknown]
  - Transitional cell carcinoma [Unknown]
  - Urinary bladder haemorrhage [Unknown]
  - Urinary retention [Unknown]
  - Intra-abdominal haematoma [Unknown]
  - Atrial fibrillation [Unknown]
  - Fibrinolysis [Recovered/Resolved]
  - Febrile bone marrow aplasia [Unknown]

NARRATIVE: CASE EVENT DATE: 202009
